FAERS Safety Report 4906232-8 (Version None)
Quarter: 2006Q1

REPORT INFORMATION
  Report Type: 
  Country: None (occurrence: None)
  Receive Date: 20060207
  Receipt Date: 20060204
  Transmission Date: 20060701
  Serious: Yes (Death)
  Sender: FDA-Public Use
  Company Number: 217803

PATIENT
  Age: 3 Year
  Sex: Male
  Weight: 28 kg

DRUGS (1)
  1. NUTROPIN [Suspect]
     Indication: PRADER-WILLI SYNDROME
     Dosage: 0.15 MG/K/W

REACTIONS (1)
  - SUDDEN DEATH [None]
